FAERS Safety Report 10203752 (Version 2)
Quarter: 2014Q2

REPORT INFORMATION
  Report Type: Report from Study
  Country: DE (occurrence: DE)
  Receive Date: 20140529
  Receipt Date: 20140529
  Transmission Date: 20141212
  Serious: Yes (Hospitalization)
  Sender: FDA-Public Use
  Company Number: PHHO2011DE16372

PATIENT
  Sex: 0

DRUGS (6)
  1. BLINDED AFINITOR [Suspect]
     Indication: TUBEROUS SCLEROSIS
     Dosage: DOUBLE BLIND
     Dates: start: 20091117
  2. BLINDED NO TREATMENT RECEIVED [Suspect]
     Indication: TUBEROUS SCLEROSIS
     Dosage: DOUBLE BLIND
     Dates: start: 20091117
  3. BLINDED PLACEBO [Suspect]
     Indication: TUBEROUS SCLEROSIS
     Dosage: DOUBLE BLIND
     Dates: start: 20091117
  4. BLINDED AFINITOR [Suspect]
     Dosage: DOUBLE BLIND
     Dates: start: 20110801, end: 20110916
  5. BLINDED NO TREATMENT RECEIVED [Suspect]
     Dosage: DOUBLE BLIND
     Dates: start: 20110801, end: 20110916
  6. BLINDED PLACEBO [Suspect]
     Dosage: DOUBLE BLIND
     Dates: start: 20110801, end: 20110916

REACTIONS (1)
  - Rhabdomyolysis [Recovered/Resolved]
